FAERS Safety Report 20062767 (Version 1)
Quarter: 2021Q4

REPORT INFORMATION
  Report Type: Spontaneous
  Country: US (occurrence: US)
  Receive Date: 20211112
  Receipt Date: 20211112
  Transmission Date: 20220303
  Serious: Yes (Other)
  Sender: FDA-Public Use
  Company Number: US-ALNYLAM PHARMACEUTICALS, INC.-ALN-2021-002810

PATIENT

DRUGS (1)
  1. ONPATTRO [Suspect]
     Active Substance: PATISIRAN SODIUM
     Indication: Product used for unknown indication
     Dosage: UNK
     Route: 065

REACTIONS (13)
  - Blindness [Unknown]
  - Psychiatric symptom [Unknown]
  - Hypoacusis [Unknown]
  - Speech disorder [Unknown]
  - Unevaluable event [Unknown]
  - Hallucination [Unknown]
  - Gait disturbance [Unknown]
  - Muscular weakness [Unknown]
  - Fatigue [Unknown]
  - Fall [Unknown]
  - Eye operation [Recovered/Resolved]
  - Asthenia [Unknown]
  - Weight decreased [Unknown]
